FAERS Safety Report 16298373 (Version 1)
Quarter: 2019Q2

REPORT INFORMATION
  Report Type: Spontaneous
  Country: GB (occurrence: GB)
  Receive Date: 20190510
  Receipt Date: 20190510
  Transmission Date: 20190711
  Serious: Yes (Life-Threatening, Hospitalization)
  Sender: FDA-Public Use
  Company Number: GB-TEVA-2019-GB-1046906

PATIENT
  Age: 60 Year
  Sex: Female
  Weight: 61.9 kg

DRUGS (17)
  1. FUROSEMIDE. [Concomitant]
     Active Substance: FUROSEMIDE
  2. FOLIC ACID. [Concomitant]
     Active Substance: FOLIC ACID
  3. NOVORAPID [Concomitant]
     Active Substance: INSULIN ASPART
  4. RAMIPRIL. [Concomitant]
     Active Substance: RAMIPRIL
  5. FOLIC ACID. [Concomitant]
     Active Substance: FOLIC ACID
  6. CYCLIZINE [Concomitant]
     Active Substance: CYCLIZINE
  7. TRAMADOL. [Concomitant]
     Active Substance: TRAMADOL
  8. PARACETAMOL [Concomitant]
     Active Substance: ACETAMINOPHEN
  9. ZOMORPH [Concomitant]
     Active Substance: MORPHINE SULFATE
  10. ORAMORPH [Concomitant]
     Active Substance: MORPHINE SULFATE
  11. NEBIVOLOL. [Concomitant]
     Active Substance: NEBIVOLOL
  12. DIAZEPAM. [Concomitant]
     Active Substance: DIAZEPAM
  13. ATORVASTATIN [Concomitant]
     Active Substance: ATORVASTATIN
  14. CEFALEXIN [Suspect]
     Active Substance: CEPHALEXIN
     Route: 048
     Dates: start: 20181024, end: 20181031
  15. LANTUS [Concomitant]
     Active Substance: INSULIN GLARGINE
  16. OMEPRAZOLE. [Concomitant]
     Active Substance: OMEPRAZOLE
  17. CORACTEN XL [Concomitant]
     Active Substance: NIFEDIPINE

REACTIONS (9)
  - Diarrhoea [Unknown]
  - Tachypnoea [Unknown]
  - Abdominal distension [Unknown]
  - Vomiting [Unknown]
  - Contusion [Unknown]
  - Decreased appetite [Unknown]
  - Ascites [Unknown]
  - Jaundice [Recovered/Resolved]
  - Nausea [Unknown]

NARRATIVE: CASE EVENT DATE: 20181101
